FAERS Safety Report 15915605 (Version 1)
Quarter: 2019Q1

REPORT INFORMATION
  Report Type: Spontaneous
  Country: US (occurrence: US)
  Receive Date: 20190114
  Receipt Date: 20190114
  Transmission Date: 20190417
  Serious: No
  Sender: FDA-Public Use
  Company Number: None

PATIENT
  Age: 5 Year
  Sex: Female
  Weight: 18.6 kg

DRUGS (11)
  1. SODIUM ACETATE. [Concomitant]
     Active Substance: SODIUM ACETATE
  2. MAGNESIUM SULFATE. [Concomitant]
     Active Substance: MAGNESIUM SULFATE
  3. TRAVASOL [Concomitant]
     Active Substance: ALANINE\ARGININE\GLYCINE\HISTIDINE\ISOLEUCINE\LEUCINE\LYSINE HYDROCHLORIDE\METHIONINE\PHENYLALANINE\PROLINE\SERINE\THREONINE\TRYPTOPHAN\TYROSINE\VALINE
  4. SMOFLIPID [Suspect]
     Active Substance: FISH OIL\MEDIUM-CHAIN TRIGLYCERIDES\OLIVE OIL\SOYBEAN OIL
     Indication: FAILURE TO THRIVE
     Route: 042
     Dates: start: 201704
  5. KCL [Concomitant]
     Active Substance: POTASSIUM CHLORIDE
  6. K PHOS [Concomitant]
  7. COPPER [Concomitant]
     Active Substance: COPPER
  8. DEXTROSE 70% [Concomitant]
     Indication: FAILURE TO THRIVE
  9. SODIUM CHLORIDE. [Concomitant]
     Active Substance: SODIUM CHLORIDE
  10. CALCIUM GLUCONATE. [Concomitant]
     Active Substance: CALCIUM GLUCONATE
  11. SELENIUM ZINC [Concomitant]

REACTIONS (2)
  - Flatulence [None]
  - Abdominal pain upper [None]

NARRATIVE: CASE EVENT DATE: 20181230
